FAERS Safety Report 16154199 (Version 3)
Quarter: 2019Q2

REPORT INFORMATION
  Report Type: Spontaneous
  Country: US (occurrence: US)
  Receive Date: 20190403
  Receipt Date: 20190417
  Transmission Date: 20190711
  Serious: Yes (Other)
  Sender: FDA-Public Use
  Company Number: US-ALLERGAN-1910623US

PATIENT
  Sex: Male

DRUGS (2)
  1. PRED FORTE [Suspect]
     Active Substance: PREDNISOLONE ACETATE
     Indication: POSTOPERATIVE CARE
     Dosage: UNK
     Route: 047
     Dates: start: 1989, end: 20190314
  2. LOTEMAX [Concomitant]
     Active Substance: LOTEPREDNOL ETABONATE
     Indication: POSTOPERATIVE CARE
     Dosage: UNK
     Route: 047

REACTIONS (6)
  - Periorbital oedema [Recovered/Resolved]
  - Corneal graft rejection [Recovered/Resolved]
  - Product availability issue [Unknown]
  - Product dose omission [Unknown]
  - Off label use [Unknown]
  - Ocular hyperaemia [Recovered/Resolved]
